FAERS Safety Report 9682576 (Version 2)
Quarter: 2013Q4

REPORT INFORMATION
  Report Type: Spontaneous
  Country: US (occurrence: US)
  Receive Date: 20131112
  Receipt Date: 20131219
  Transmission Date: 20140711
  Serious: Yes (Other)
  Sender: FDA-Public Use
  Company Number: US-UCBSA-102424

PATIENT
  Age: 52 Year
  Sex: Male
  Weight: 109 kg

DRUGS (8)
  1. CIMZIA [Suspect]
     Indication: RHEUMATOID ARTHRITIS
     Dates: start: 2013, end: 201308
  2. FOLIC ACID [Concomitant]
     Indication: VITAMIN SUPPLEMENTATION
     Dosage: QD; UNKNOWN DOSE
  3. VITAMIN D [Concomitant]
     Indication: VITAMIN SUPPLEMENTATION
     Dosage: DOSE PER INTAKE: 50000 UNITS ONCE PER WEEK
     Route: 048
  4. TRAMADOL [Concomitant]
     Indication: PAIN
     Dosage: Q 4 HOURS; 50 MG
     Route: 048
  5. METHYL PREDNISOLONE [Concomitant]
     Dosage: UP TO 6 TABS Q 4 DAYS AND THEN DECREASED PER MD ORDER ; 4 MG
     Route: 048
  6. HYDROCHLORAZINE [Concomitant]
     Dosage: THREE TABS Q DAY ; 200 MG
     Route: 048
  7. OXYCODONE [Concomitant]
     Indication: PAIN
     Dosage: Q 4 HOURS
     Route: 048
  8. NEXIUM [Concomitant]
     Indication: ABDOMINAL DISCOMFORT
     Route: 048

REACTIONS (1)
  - Herpes zoster [Recovered/Resolved]
